FAERS Safety Report 16809127 (Version 1)
Quarter: 2019Q3

REPORT INFORMATION
  Report Type: Spontaneous
  Country: SE (occurrence: SE)
  Receive Date: 20190916
  Receipt Date: 20190916
  Transmission Date: 20191005
  Serious: Yes (Other)
  Sender: FDA-Public Use
  Company Number: SE-TEVA-2019-SE-1106078

PATIENT
  Age: 50 Year
  Sex: Male
  Weight: 130 kg

DRUGS (7)
  1. VENLAFAXIN KRKA 75 MG DEPOTKAPSEL, HARD [Concomitant]
     Dates: start: 20020101
  2. RAMIPRIL STADA 2,5 MG TABLETT [Concomitant]
     Active Substance: RAMIPRIL
     Dates: start: 20190101
  3. TROMBYL 75 MG TABLETT [Concomitant]
     Active Substance: ASPIRIN
     Dates: start: 20190101
  4. ATORVASTATIN KRKA D.D. 80 MG FILMDRAGERAD TABLETT [Concomitant]
     Dates: start: 20190101
  5. METOPROLOL SANDOZ 200 MG DEPOTTABLETT [Concomitant]
     Dates: start: 20190101
  6. BRILIQUE 90 MG FILMDRAGERAD TABLETT [Concomitant]
     Active Substance: TICAGRELOR
     Dates: start: 20190101
  7. EZETIMIB ACTAVIS 10 MG TABLETT [Suspect]
     Active Substance: EZETIMIBE
     Dosage: 10MG
     Dates: start: 20190315, end: 20190808

REACTIONS (5)
  - Dizziness [Recovered/Resolved]
  - Vision blurred [Recovered/Resolved]
  - Fatigue [Recovered/Resolved]
  - Amnesia [Recovered/Resolved]
  - Depressed level of consciousness [Recovered/Resolved]

NARRATIVE: CASE EVENT DATE: 20190315
